FAERS Safety Report 7347956-5 (Version None)
Quarter: 2011Q1

REPORT INFORMATION
  Report Type: 
  Country: None (occurrence: None)
  Receive Date: 20110311
  Receipt Date: 20110224
  Transmission Date: 20110831
  Serious: Yes (Hospitalization, Other)
  Sender: FDA-Public Use
  Company Number: US-BAYER-201041500NA

PATIENT
  Sex: Female
  Weight: 72 kg

DRUGS (3)
  1. YASMIN [Suspect]
  2. OCELLA [Suspect]
     Indication: ACNE
  3. YAZ [Suspect]
     Indication: PRODUCT USED FOR UNKNOWN INDICATION

REACTIONS (7)
  - RENAL FAILURE CHRONIC [None]
  - THROMBOSIS [None]
  - DEEP VEIN THROMBOSIS [None]
  - AXILLARY VEIN THROMBOSIS [None]
  - SUBCLAVIAN VEIN THROMBOSIS [None]
  - INJURY [None]
  - JUGULAR VEIN THROMBOSIS [None]
